FAERS Safety Report 14161725 (Version 1)
Quarter: 2017Q4

REPORT INFORMATION
  Report Type: Spontaneous
  Country: GB (occurrence: GB)
  Receive Date: 20171106
  Receipt Date: 20171106
  Transmission Date: 20180321
  Serious: Yes (Disabling, Other)
  Sender: FDA-Public Use
  Company Number: GB-TEVA-820005ACC

PATIENT
  Age: 80 Year
  Sex: Male
  Weight: 75 kg

DRUGS (8)
  1. COCODAMOL [Suspect]
     Active Substance: ACETAMINOPHEN\CODEINE PHOSPHATE
     Dates: start: 20170925
  2. PARACETAMOL [Concomitant]
     Active Substance: ACETAMINOPHEN
     Dosage: ONE OR TWO TO BE TAKEN FOUR TIMES A DAY
     Dates: start: 20170815, end: 20170827
  3. SILDENAFIL. [Concomitant]
     Active Substance: SILDENAFIL
     Dates: start: 20170505
  4. TRAMADOL. [Concomitant]
     Active Substance: TRAMADOL
     Dosage: TAKE 1 OR 2 AS DIRECTED
     Dates: start: 20170904, end: 20171002
  5. BICALUTAMIDE. [Concomitant]
     Active Substance: BICALUTAMIDE
     Dosage: 1 DOSAGE FORMS DAILY;
     Dates: start: 20170505
  6. FENBID [Concomitant]
     Active Substance: IBUPROFEN
     Dosage: 3 DOSAGE FORMS DAILY;
     Dates: start: 20171005, end: 20171012
  7. ADCAL [Concomitant]
     Active Substance: CALCIUM CARBONATE
     Dosage: 2 DOSAGE FORMS DAILY;
     Dates: start: 20170505
  8. RAMIPRIL. [Concomitant]
     Active Substance: RAMIPRIL
     Dosage: 1 DOSAGE FORMS DAILY;
     Dates: start: 20170505

REACTIONS (1)
  - Confusional state [Recovered/Resolved]

NARRATIVE: CASE EVENT DATE: 20170925
